FAERS Safety Report 7817022-0 (Version None)
Quarter: 2011Q4

REPORT INFORMATION
  Report Type: 
  Country: None (occurrence: None)
  Receive Date: 20111017
  Receipt Date: 20111003
  Transmission Date: 20120403
  Serious: Yes (Hospitalization)
  Sender: FDA-Public Use
  Company Number: FR-ELI_LILLY_AND_COMPANY-FR201110000169

PATIENT
  Sex: Male

DRUGS (13)
  1. RILMENIDINE [Concomitant]
     Dosage: 1 DF, QD
  2. METFORMIN HCL [Concomitant]
     Dosage: 850 MG, TID
  3. PANTOPRAZOLE [Concomitant]
     Dosage: 20 MG, QD
  4. AMLODIPINE BESYLATE [Concomitant]
     Dosage: 10 MG, QD
  5. PROZAC [Suspect]
     Indication: NEUROSIS
     Dosage: 20 MG, UNK
     Route: 048
     Dates: start: 20110119, end: 20110125
  6. LACTULOSE [Concomitant]
     Dosage: 1 DF, QD
  7. BROMAZEPAM [Concomitant]
     Dosage: 0.5 DF, QD
  8. ASPIRIN [Concomitant]
     Dosage: 75 MG, QD
  9. ARCOXIA [Concomitant]
     Dosage: 60 MG, QD
  10. FENOFIBRATO [Concomitant]
     Dosage: 200 MG, QD
  11. SOTALOL HCL [Concomitant]
     Dosage: 0.5 DF, BID
  12. GLYBURIDE [Concomitant]
     Dosage: 5 MG, TID
  13. FLECTOR                            /00372302/ [Concomitant]

REACTIONS (2)
  - DISORIENTATION [None]
  - OFF LABEL USE [None]
